FAERS Safety Report 13665174 (Version 1)
Quarter: 2017Q2

REPORT INFORMATION
  Report Type: Spontaneous
  Country: FR (occurrence: FR)
  Receive Date: 20170619
  Receipt Date: 20170619
  Transmission Date: 20170830
  Serious: Yes (Hospitalization)
  Sender: FDA-Public Use
  Company Number: FR-INDIVIOR LIMITED-INDV-102674-2017

PATIENT
  Sex: Male

DRUGS (1)
  1. SUBUTEX [Suspect]
     Active Substance: BUPRENORPHINE HYDROCHLORIDE
     Indication: PRODUCT USED FOR UNKNOWN INDICATION
     Dosage: 8MG, DAILY
     Route: 042

REACTIONS (4)
  - Intentional product use issue [Unknown]
  - Injection site ulcer [Recovering/Resolving]
  - Drug diversion [Recovering/Resolving]
  - Deep vein thrombosis [Recovering/Resolving]
